FAERS Safety Report 19465572 (Version 3)
Quarter: 2022Q1

REPORT INFORMATION
  Report Type: Spontaneous
  Country: US (occurrence: US)
  Receive Date: 20210624
  Receipt Date: 20220223
  Transmission Date: 20220423
  Serious: Yes (Hospitalization, Other)
  Sender: FDA-Public Use
  Company Number: US-GILEAD-2021-0537449

PATIENT
  Sex: Female
  Weight: 105.22 kg

DRUGS (34)
  1. TRUVADA [Suspect]
     Active Substance: EMTRICITABINE\TENOFOVIR DISOPROXIL FUMARATE
     Indication: HIV infection
     Dosage: UNK
     Route: 048
     Dates: start: 2010
  2. TRUVADA [Suspect]
     Active Substance: EMTRICITABINE\TENOFOVIR DISOPROXIL FUMARATE
     Dosage: UNK
     Route: 048
     Dates: start: 200807, end: 201107
  3. EPZICOM [Concomitant]
     Active Substance: ABACAVIR SULFATE\LAMIVUDINE
  4. NORVIR [Concomitant]
     Active Substance: RITONAVIR
  5. PREZISTA [Concomitant]
     Active Substance: DARUNAVIR ETHANOLATE
  6. TRIUMEQ [Concomitant]
     Active Substance: ABACAVIR SULFATE\DOLUTEGRAVIR SODIUM\LAMIVUDINE
  7. ALBUTEROL [Concomitant]
     Active Substance: ALBUTEROL
  8. ALLEGRA [Concomitant]
     Active Substance: FEXOFENADINE HYDROCHLORIDE
  9. ATORVASTATIN [Concomitant]
     Active Substance: ATORVASTATIN
  10. CARVEDILOL [Concomitant]
     Active Substance: CARVEDILOL
  11. DEPAKOTE [Concomitant]
     Active Substance: DIVALPROEX SODIUM
  12. DOCUSATE [Concomitant]
     Active Substance: DOCUSATE
  13. DULOXETINE [Concomitant]
     Active Substance: DULOXETINE
  14. FARXIGA [Concomitant]
     Active Substance: DAPAGLIFLOZIN PROPANEDIOL
  15. FLUCONAZOLE [Concomitant]
     Active Substance: FLUCONAZOLE
  16. GABAPENTIN [Concomitant]
     Active Substance: GABAPENTIN
  17. GLIPIZIDE [Concomitant]
     Active Substance: GLIPIZIDE
  18. HYDROCHLOROTHIAZIDE [Concomitant]
     Active Substance: HYDROCHLOROTHIAZIDE
  19. HYDROXYZINE [Concomitant]
     Active Substance: HYDROXYZINE HYDROCHLORIDE
  20. JANUVIA [Concomitant]
     Active Substance: SITAGLIPTIN PHOSPHATE
  21. JARDIANCE [Concomitant]
     Active Substance: EMPAGLIFLOZIN
  22. LEVEMIR [Concomitant]
     Active Substance: INSULIN DETEMIR
  23. LORATADINE [Concomitant]
     Active Substance: LORATADINE
  24. LOSARTAN [Concomitant]
     Active Substance: LOSARTAN
  25. METFORMIN [Concomitant]
     Active Substance: METFORMIN HYDROCHLORIDE
  26. MICONAZOLE [Concomitant]
     Active Substance: MICONAZOLE
  27. MIRALAX [Concomitant]
     Active Substance: POLYETHYLENE GLYCOL 3350
  28. OMEPRAZOLE [Concomitant]
     Active Substance: OMEPRAZOLE
  29. PRAVASTATIN [Concomitant]
     Active Substance: PRAVASTATIN
  30. REYATAZ [Concomitant]
     Active Substance: ATAZANAVIR SULFATE
  31. SEROQUEL [Concomitant]
     Active Substance: QUETIAPINE FUMARATE
  32. TRAZODONE [Concomitant]
     Active Substance: TRAZODONE HYDROCHLORIDE
  33. VALACYCLOVIR [Concomitant]
     Active Substance: VALACYCLOVIR HYDROCHLORIDE
  34. VALSARTAN [Concomitant]
     Active Substance: VALSARTAN

REACTIONS (11)
  - Chronic kidney disease [Unknown]
  - Fanconi syndrome acquired [Not Recovered/Not Resolved]
  - Acute kidney injury [Recovered/Resolved]
  - Emotional distress [Not Recovered/Not Resolved]
  - Anhedonia [Not Recovered/Not Resolved]
  - Pain [Not Recovered/Not Resolved]
  - Anxiety [Not Recovered/Not Resolved]
  - Pollakiuria [Unknown]
  - Back pain [Unknown]
  - Insomnia [Not Recovered/Not Resolved]
  - Depression [Not Recovered/Not Resolved]

NARRATIVE: CASE EVENT DATE: 20110601
